FAERS Safety Report 18031694 (Version 1)
Quarter: 2020Q3

REPORT INFORMATION
  Report Type: Spontaneous
  Country: US (occurrence: US)
  Receive Date: 20200716
  Receipt Date: 20200716
  Transmission Date: 20201103
  Serious: No
  Sender: FDA-Public Use
  Company Number: None

PATIENT

DRUGS (1)
  1. CLOZAPINE. [Suspect]
     Active Substance: CLOZAPINE
     Dates: start: 20190709, end: 20190815

REACTIONS (5)
  - Sinus tachycardia [None]
  - Electrocardiogram T wave inversion [None]
  - C-reactive protein increased [None]
  - Myocarditis [None]
  - Upper respiratory tract infection [None]

NARRATIVE: CASE EVENT DATE: 20190813
